FAERS Safety Report 14815944 (Version 1)
Quarter: 2018Q2

REPORT INFORMATION
  Report Type: Report from Study
  Country: US (occurrence: US)
  Receive Date: 20180426
  Receipt Date: 20180426
  Transmission Date: 20180711
  Serious: No
  Sender: FDA-Public Use
  Company Number: US-ALEXION PHARMACEUTICALS INC.-A201804789

PATIENT
  Sex: Male

DRUGS (1)
  1. SOLIRIS [Suspect]
     Active Substance: ECULIZUMAB
     Indication: PRODUCT USED FOR UNKNOWN INDICATION
     Dosage: UNK
     Route: 065

REACTIONS (12)
  - Haemoglobin decreased [Recovered/Resolved]
  - Platelet count decreased [Recovered/Resolved]
  - Blood glucose decreased [Recovered/Resolved]
  - Red blood cell count decreased [Recovered/Resolved]
  - Neutrophil count decreased [Recovered/Resolved]
  - Monocyte count increased [Recovered/Resolved]
  - Anion gap increased [Recovered/Resolved]
  - Red cell distribution width increased [Recovered/Resolved]
  - Eosinophil count increased [Recovered/Resolved]
  - Laboratory test abnormal [Recovered/Resolved]
  - Haematocrit decreased [Recovered/Resolved]
  - Eosinophil percentage increased [Recovered/Resolved]
